FAERS Safety Report 5601981-0 (Version None)
Quarter: 2008Q1

REPORT INFORMATION
  Report Type: 
  Country: None (occurrence: None)
  Receive Date: 20080122
  Receipt Date: 20080116
  Transmission Date: 20080703
  Serious: Yes (Hospitalization)
  Sender: FDA-Public Use
  Company Number: SP01753

PATIENT
  Age: 66 Year
  Sex: Male
  Weight: 81.6475 kg

DRUGS (3)
  1. MOVIPREP [Suspect]
     Indication: COLONOSCOPY
     Dosage: (2 LIT), ORAL
     Route: 048
     Dates: start: 20080113, end: 20080114
  2. LISINOPRIL [Concomitant]
  3. 6-MERCAPTOURINE [Concomitant]

REACTIONS (3)
  - ATRIAL FIBRILLATION [None]
  - ATRIAL FLUTTER [None]
  - DEHYDRATION [None]
